FAERS Safety Report 4888708-5 (Version None)
Quarter: 2005Q4

REPORT INFORMATION
  Report Type: 
  Country: None (occurrence: None)
  Receive Date: 20051215
  Receipt Date: 20041210
  Transmission Date: 20060501
  Serious: Yes (Other)
  Sender: FDA-Public Use
  Company Number: 2004113063

PATIENT
  Age: 60 Year
  Sex: Male
  Weight: 88.4514 kg

DRUGS (2)
  1. BEXTRA [Suspect]
     Indication: LIMB INJURY
     Dosage: 20 MG (20 MG, DAILY), ORAL
     Route: 048
     Dates: start: 20040301, end: 20040701
  2. VICODIN [Concomitant]

REACTIONS (1)
  - MYOCARDIAL INFARCTION [None]
